FAERS Safety Report 6480648-3 (Version None)
Quarter: 2009Q4

REPORT INFORMATION
  Report Type: 
  Country: None (occurrence: None)
  Receive Date: 20091208
  Receipt Date: 20091201
  Transmission Date: 20100525
  Serious: Yes (Other)
  Sender: FDA-Public Use
  Company Number: AU-PFIZER INC-2009283971

PATIENT
  Age: 53 Year
  Sex: Male

DRUGS (4)
  1. CHAMPIX [Suspect]
     Indication: SMOKING CESSATION THERAPY
     Dosage: UNK
     Dates: start: 20090101
  2. VALIUM [Concomitant]
  3. TRAMAL [Concomitant]
  4. PARIET [Concomitant]
     Indication: BLOOD PRESSURE

REACTIONS (3)
  - INSOMNIA [None]
  - RASH PRURITIC [None]
  - SKIN INFECTION [None]
